FAERS Safety Report 21391517 (Version 1)
Quarter: 2022Q3

REPORT INFORMATION
  Report Type: Spontaneous
  Country: US (occurrence: US)
  Receive Date: 20220929
  Receipt Date: 20220929
  Transmission Date: 20221027
  Serious: Yes (Hospitalization, Other)
  Sender: FDA-Public Use
  Company Number: US-PFIZER INC-202201174797

PATIENT
  Age: 79 Year
  Sex: Female

DRUGS (3)
  1. GENTAMICIN SULFATE [Suspect]
     Active Substance: GENTAMICIN SULFATE
     Indication: Enterococcal sepsis
     Dosage: 80 MG
  2. RANITIDINE [Suspect]
     Active Substance: RANITIDINE
     Indication: Enterococcal sepsis
     Dosage: UNK
  3. IMIPENEM [Concomitant]
     Active Substance: IMIPENEM
     Indication: Enterococcal sepsis
     Dosage: UNK

REACTIONS (2)
  - Acute generalised exanthematous pustulosis [Recovered/Resolved]
  - Disease recurrence [Recovered/Resolved]
